FAERS Safety Report 6030265-4 (Version None)
Quarter: 2009Q1

REPORT INFORMATION
  Report Type: 
  Country: None (occurrence: None)
  Receive Date: 20090107
  Receipt Date: 20081229
  Transmission Date: 20090719
  Serious: Yes (Hospitalization)
  Sender: FDA-Public Use
  Company Number: JP-SANOFI-SYNTHELABO-A01200816611

PATIENT
  Age: 49 Year
  Sex: Male

DRUGS (2)
  1. ELPLAT [Suspect]
     Indication: LARGE INTESTINE CARCINOMA
     Dosage: UNK
     Route: 041
  2. AVASTIN [Suspect]
     Dosage: 100 MG
     Route: 041
     Dates: start: 20081208, end: 20081208

REACTIONS (1)
  - SHOCK [None]
